FAERS Safety Report 23986084 (Version 1)
Quarter: 2024Q2

REPORT INFORMATION
  Report Type: Spontaneous
  Country: TR (occurrence: TR)
  Receive Date: 20240618
  Receipt Date: 20240618
  Transmission Date: 20240716
  Serious: Yes (Death, Other)
  Sender: FDA-Public Use
  Company Number: TR-AMGEN-TURSP2024116993

PATIENT

DRUGS (7)
  1. BEVACIZUMAB [Suspect]
     Active Substance: BEVACIZUMAB
     Indication: Ovarian epithelial cancer
     Dosage: 15 MILLIGRAM/KILOGRAM, Q3WK
     Route: 042
  2. CARBOPLATIN\PACLITAXEL [Concomitant]
     Active Substance: CARBOPLATIN\PACLITAXEL
     Indication: Ovarian epithelial cancer
     Dosage: UNK
     Route: 065
  3. CARBOPLATIN\GEMCITABINE [Concomitant]
     Active Substance: CARBOPLATIN\GEMCITABINE
     Indication: Ovarian epithelial cancer
     Dosage: UNK
     Route: 065
  4. CISPLATIN;GEMCITABINE [Concomitant]
     Indication: Ovarian epithelial cancer
     Dosage: UNK
     Route: 065
  5. CISPLATIN\PACLITAXEL [Concomitant]
     Active Substance: CISPLATIN\PACLITAXEL
     Indication: Ovarian epithelial cancer
     Dosage: UNK
     Route: 065
  6. DOXORUBICIN [Concomitant]
     Active Substance: DOXORUBICIN
     Indication: Ovarian epithelial cancer
     Dosage: UNK
     Route: 065
  7. PACLITAXEL [Concomitant]
     Active Substance: PACLITAXEL
     Indication: Ovarian epithelial cancer
     Dosage: UNK UNK, QWK
     Route: 065

REACTIONS (7)
  - Death [Fatal]
  - Ovarian epithelial cancer recurrent [Unknown]
  - Ovarian epithelial cancer metastatic [Unknown]
  - Proteinuria [Unknown]
  - Therapy partial responder [Unknown]
  - Gastrointestinal disorder [Unknown]
  - Hypertension [Unknown]
